FAERS Safety Report 6596196-6 (Version None)
Quarter: 2010Q1

REPORT INFORMATION
  Report Type: 
  Country: None (occurrence: None)
  Receive Date: 20100223
  Receipt Date: 20100219
  Transmission Date: 20100710
  Serious: Yes (Life-Threatening, Hospitalization, Other)
  Sender: FDA-Public Use
  Company Number: CA-SANOFI-AVENTIS-2010SA009841

PATIENT
  Age: 53 Year
  Sex: Female
  Weight: 59.1 kg

DRUGS (6)
  1. DOCETAXEL [Suspect]
     Indication: NON-SMALL CELL LUNG CANCER
     Route: 042
     Dates: start: 20091221
  2. BLINDED THERAPY [Suspect]
     Indication: NON-SMALL CELL LUNG CANCER
  3. DEXAMETHASONE [Concomitant]
  4. HYDROMORPHONE HYDROCHLORIDE [Concomitant]
  5. CLONAZEPAM [Concomitant]
  6. NORTRIPTYLINE HCL [Concomitant]

REACTIONS (5)
  - ARRHYTHMIA [None]
  - CARDIAC ARREST [None]
  - HYPOTENSION [None]
  - LUNG DISORDER [None]
  - RESTLESSNESS [None]
